FAERS Safety Report 6810979-6 (Version None)
Quarter: 2010Q2

REPORT INFORMATION
  Report Type: 
  Country: None (occurrence: None)
  Receive Date: 20100630
  Receipt Date: 20090202
  Transmission Date: 20101027
  Serious: No
  Sender: FDA-Public Use
  Company Number: US-PFIZER INC-2009166754

PATIENT
  Sex: Male

DRUGS (1)
  1. NICOTROL [Suspect]
     Dosage: UNK

REACTIONS (2)
  - DRUG LABEL CONFUSION [None]
  - DYSGEUSIA [None]
